FAERS Safety Report 6945248-7 (Version None)
Quarter: 2010Q3

REPORT INFORMATION
  Report Type: 
  Country: None (occurrence: None)
  Receive Date: 20100827
  Receipt Date: 20100726
  Transmission Date: 20110219
  Serious: No
  Sender: FDA-Public Use
  Company Number: US-KINGPHARMUSA00001-K201000931

PATIENT
  Sex: Female

DRUGS (4)
  1. FLECTOR [Suspect]
     Indication: BACK PAIN
     Dosage: 1 PATCH, FOR 11 HOURS, TWICE DAILY
     Route: 061
     Dates: start: 20100723
  2. NEXIUM [Concomitant]
     Indication: GASTROOESOPHAGEAL REFLUX DISEASE
     Dosage: UNK
  3. CHOLESTEROL- AND TRIGLYCERIDE REDUCERS [Concomitant]
     Indication: BLOOD CHOLESTEROL INCREASED
     Dosage: UNK
  4. VITAMINS [Concomitant]
     Dosage: UNK

REACTIONS (2)
  - INSOMNIA [None]
  - RESTLESSNESS [None]
